FAERS Safety Report 17903444 (Version 1)
Quarter: 2020Q2

REPORT INFORMATION
  Report Type: Spontaneous
  Country: CA (occurrence: CA)
  Receive Date: 20200617
  Receipt Date: 20200617
  Transmission Date: 20200714
  Serious: Yes (Hospitalization, Other)
  Sender: FDA-Public Use
  Company Number: CA-AUROBINDO-AUR-APL-2020-029163

PATIENT
  Age: 61 Year
  Sex: Female

DRUGS (4)
  1. CRINONE [Interacting]
     Active Substance: PROGESTERONE
     Indication: MENOPAUSAL SYMPTOMS
     Dosage: 100.0 MILLIGRAM, ONCE A DAY
     Route: 065
  2. SERTRALINE [Suspect]
     Active Substance: SERTRALINE HYDROCHLORIDE
     Indication: DEPRESSION
     Dosage: 100.0 MILLIGRAM, ONCE A DAY
     Route: 065
  3. SERTRALINE [Interacting]
     Active Substance: SERTRALINE HYDROCHLORIDE
     Indication: ANXIETY
     Dosage: 200 MILLIGRAM, ONCE A DAY
     Route: 065
  4. PREMARIN [Interacting]
     Active Substance: ESTROGENS, CONJUGATED
     Indication: MENOPAUSAL SYMPTOMS
     Dosage: 0.625 MILLIGRAM, ONCE A DAY
     Route: 065

REACTIONS (3)
  - Drug-induced liver injury [Unknown]
  - Therapeutic product effect incomplete [Unknown]
  - Drug interaction [Unknown]
